FAERS Safety Report 7573906-2 (Version None)
Quarter: 2011Q2

REPORT INFORMATION
  Report Type: 
  Country: None (occurrence: None)
  Receive Date: 20110627
  Receipt Date: 20110617
  Transmission Date: 20111010
  Serious: Yes (Life-Threatening)
  Sender: FDA-Public Use
  Company Number: B0727070A

PATIENT
  Age: 19 Year
  Sex: Female

DRUGS (2)
  1. SERTRALINE [Concomitant]
  2. LAMICTAL [Suspect]
     Indication: EPILEPSY
     Route: 048
     Dates: start: 20100801

REACTIONS (4)
  - DEPRESSED MOOD [None]
  - SUICIDE ATTEMPT [None]
  - SUICIDAL IDEATION [None]
  - INTENTIONAL SELF-INJURY [None]
